FAERS Safety Report 10088014 (Version 1)
Quarter: 2014Q2

REPORT INFORMATION
  Report Type: Spontaneous
  Country: IT (occurrence: IT)
  Receive Date: 20140420
  Receipt Date: 20140420
  Transmission Date: 20141212
  Serious: Yes (Death, Other)
  Sender: FDA-Public Use
  Company Number: PHHY2014IT046136

PATIENT
  Age: 64 Year
  Sex: Female

DRUGS (12)
  1. ZOLEDRONIC ACID [Suspect]
  2. METHOTREXATE [Suspect]
     Indication: INVASIVE DUCTAL BREAST CARCINOMA
     Dosage: 40 MG/M2, UNK
  3. METHOTREXATE [Suspect]
     Dosage: 2.5 MG,
  4. EXEMESTANE [Suspect]
  5. DOXORUBICIN [Suspect]
     Indication: INVASIVE DUCTAL BREAST CARCINOMA
     Dosage: 60 MG/M2, UNK
  6. VINORELBINE [Suspect]
     Indication: INVASIVE DUCTAL BREAST CARCINOMA
     Dosage: 60 MG/M2, QW3
  7. CAPECITABINE [Suspect]
     Indication: INVASIVE DUCTAL BREAST CARCINOMA
     Dosage: 1000 MG/M2, QW3
  8. DOCETAXEL [Suspect]
     Indication: INVASIVE DUCTAL BREAST CARCINOMA
     Dosage: 100 MG/M2, QW3
  9. 5-FLUOROURACIL [Suspect]
     Indication: INVASIVE DUCTAL BREAST CARCINOMA
     Dosage: 600 MG/M2, QW3
  10. TAMOXIFEN [Suspect]
     Indication: INVASIVE DUCTAL BREAST CARCINOMA
     Dosage: 20 MG PER DAY
  11. CYCLOPHOSPHAMIDE [Suspect]
     Indication: INVASIVE DUCTAL BREAST CARCINOMA
     Dosage: 600 MG/M2, UNK
  12. CYCLOPHOSPHAMIDE [Suspect]
     Dosage: 50 MG PER DAY
     Route: 048

REACTIONS (17)
  - Gastrointestinal haemorrhage [Fatal]
  - Pneumonia [Fatal]
  - Invasive ductal breast carcinoma [Unknown]
  - Metastases to liver [Unknown]
  - Osteolysis [Unknown]
  - Malignant neoplasm progression [Unknown]
  - Hepatic lesion [Unknown]
  - Metastatic lymphoma [Unknown]
  - Pleural effusion [Unknown]
  - Anaemia [Unknown]
  - Hepatosplenomegaly [Unknown]
  - Reticulocyte count decreased [Unknown]
  - Thrombocytopenia [Unknown]
  - Blood lactate dehydrogenase increased [Unknown]
  - Serum ferritin increased [Unknown]
  - Myelodysplastic syndrome [Unknown]
  - Erythroleukaemia [Unknown]
